FAERS Safety Report 5584028-4 (Version None)
Quarter: 2008Q1

REPORT INFORMATION
  Report Type: 
  Country: None (occurrence: None)
  Receive Date: 20080104
  Receipt Date: 20080104
  Transmission Date: 20080703
  Serious: Yes (Disabling)
  Sender: FDA-Public Use
  Company Number: None

PATIENT
  Age: 53 Year
  Sex: Female

DRUGS (4)
  1. INTEGRILIN [Suspect]
  2. ASPIRIN [Suspect]
  3. LOVENOX [Suspect]
  4. PLAVIX [Suspect]

REACTIONS (4)
  - FACE INJURY [None]
  - FALL [None]
  - HEAD INJURY [None]
  - SUBARACHNOID HAEMORRHAGE [None]
